FAERS Safety Report 11227576 (Version 3)
Quarter: 2015Q4

REPORT INFORMATION
  Report Type: Spontaneous
  Country: US (occurrence: US)
  Receive Date: 20150630
  Receipt Date: 20151026
  Transmission Date: 20160304
  Serious: No
  Sender: FDA-Public Use
  Company Number: US-009507513-1506USA004485

PATIENT
  Age: 27 Year
  Sex: Female

DRUGS (1)
  1. NEXPLANON [Suspect]
     Active Substance: ETONOGESTREL
     Indication: CONTRACEPTION
     Dosage: UNK
     Route: 058
     Dates: start: 20150601

REACTIONS (7)
  - Device deployment issue [Unknown]
  - Implant site pain [Not Recovered/Not Resolved]
  - Hypoaesthesia [Unknown]
  - Implant site rash [Not Recovered/Not Resolved]
  - Implant site pruritus [Not Recovered/Not Resolved]
  - Implant site haematoma [Recovered/Resolved]
  - Implant site bruising [Recovered/Resolved]

NARRATIVE: CASE EVENT DATE: 2015
